FAERS Safety Report 18855245 (Version 1)
Quarter: 2021Q1

REPORT INFORMATION
  Report Type: Spontaneous
  Country: US (occurrence: US)
  Receive Date: 20210205
  Receipt Date: 20210205
  Transmission Date: 20210420
  Serious: Yes (Hospitalization, Other)
  Sender: FDA-Public Use
  Company Number: US-GILEAD-2021-0515887

PATIENT
  Age: 69 Year
  Sex: Male

DRUGS (23)
  1. HEPARIN [Concomitant]
     Active Substance: HEPARIN SODIUM
     Dosage: UNK
     Dates: start: 202101
  2. CYCLOPHOSPHAMIDE. [Concomitant]
     Active Substance: CYCLOPHOSPHAMIDE
     Indication: BONE MARROW CONDITIONING REGIMEN
     Dosage: UNK
     Dates: start: 20201211, end: 20201213
  3. PRISTIQ EXTENDED?RELEASE [Concomitant]
     Active Substance: DESVENLAFAXINE SUCCINATE
     Dosage: UNK
     Dates: start: 20210111
  4. ACYCLOVIR [ACICLOVIR] [Concomitant]
     Active Substance: ACYCLOVIR
  5. MAGNESIUM [Concomitant]
     Active Substance: MAGNESIUM
  6. AMIODARONE [Concomitant]
     Active Substance: AMIODARONE
     Route: 048
  7. AMIODARONE [Concomitant]
     Active Substance: AMIODARONE
     Dosage: UNK
     Route: 042
  8. COUMADIN [Concomitant]
     Active Substance: WARFARIN SODIUM
     Dosage: DOSE ADJUSTMENTS TO MAINTAIN INR GREATER THAN 2
  9. ATORVASTATIN [Concomitant]
     Active Substance: ATORVASTATIN
     Dosage: UNK
     Dates: end: 20210103
  10. TRAMADOL. [Concomitant]
     Active Substance: TRAMADOL
     Dosage: PRN
     Dates: start: 20210104
  11. LOVENOX [Concomitant]
     Active Substance: ENOXAPARIN SODIUM
  12. HEPARIN [Concomitant]
     Active Substance: HEPARIN SODIUM
     Indication: PROPHYLAXIS
     Dosage: UNK
     Dates: start: 20201211
  13. KEPPRA [Concomitant]
     Active Substance: LEVETIRACETAM
     Indication: SEIZURE PROPHYLAXIS
     Dosage: UNK
     Dates: start: 202012
  14. CEFDINIR. [Concomitant]
     Active Substance: CEFDINIR
  15. IMMUNOGLOBULIN G HUMAN [Concomitant]
     Active Substance: HUMAN IMMUNOGLOBULIN G
     Dosage: UNK
     Dates: start: 20201215
  16. FLUOXETINE [Concomitant]
     Active Substance: FLUOXETINE HYDROCHLORIDE
     Dosage: UNK
     Dates: end: 202011
  17. FLUDARABINE [Concomitant]
     Active Substance: FLUDARABINE PHOSPHATE
     Indication: BONE MARROW CONDITIONING REGIMEN
     Dosage: UNK, REDUCED BY 20%
     Dates: start: 20201209, end: 20201211
  18. TECARTUS [Suspect]
     Active Substance: BREXUCABTAGENE AUTOLEUCEL
     Indication: MANTLE CELL LYMPHOMA RECURRENT
     Dosage: 2 X 10/6 CAR?T POSITIVE VIABLE T CELLS PER KG BODY WEIGHT
     Route: 042
     Dates: start: 20201214, end: 20201214
  19. PENTAMIDINE [Concomitant]
     Active Substance: PENTAMIDINE
     Dosage: UNK
     Route: 055
     Dates: start: 20201214
  20. TYLENOL [Concomitant]
     Active Substance: ACETAMINOPHEN
     Dosage: PRN
     Dates: start: 20210104
  21. LEXAPRO [Concomitant]
     Active Substance: ESCITALOPRAM OXALATE
     Dosage: UNK
     Dates: end: 20210111
  22. PLAVIX [Concomitant]
     Active Substance: CLOPIDOGREL BISULFATE
     Dosage: UNK
     Dates: end: 20210111
  23. BACTRIM [Concomitant]
     Active Substance: SULFAMETHOXAZOLE\TRIMETHOPRIM

REACTIONS (16)
  - Pancreatitis necrotising [Unknown]
  - Interstitial lung disease [Recovering/Resolving]
  - Retroperitoneal haematoma [Unknown]
  - Neurotoxicity [Recovered/Resolved]
  - Cytokine release syndrome [Recovered/Resolved]
  - Cytokine release syndrome [Recovered/Resolved]
  - Acute kidney injury [Unknown]
  - Sepsis [Unknown]
  - Endocarditis [Unknown]
  - Cytomegalovirus viraemia [Unknown]
  - Ventricular tachycardia [Unknown]
  - Encephalopathy [Unknown]
  - Small intestinal obstruction [Unknown]
  - Peritonitis bacterial [Unknown]
  - Respiratory failure [Unknown]
  - Abdominal wall haematoma [Unknown]

NARRATIVE: CASE EVENT DATE: 20201214
